FAERS Safety Report 8397235-2 (Version None)
Quarter: 2012Q2

REPORT INFORMATION
  Report Type: 
  Country: None (occurrence: None)
  Receive Date: 20120530
  Receipt Date: 20120525
  Transmission Date: 20120825
  Serious: Yes (Other)
  Sender: FDA-Public Use
  Company Number: US-AMGEN-USASP2012033083

PATIENT
  Age: 50 Year
  Sex: Male

DRUGS (1)
  1. ENBREL [Suspect]
     Indication: PSORIASIS
     Dosage: 50 MG, QWK
     Dates: start: 20070901, end: 20120501

REACTIONS (6)
  - INJECTION SITE PAIN [None]
  - PERSONALITY CHANGE [None]
  - PSORIASIS [None]
  - FEELINGS OF WORTHLESSNESS [None]
  - AGGRESSION [None]
  - TEARFULNESS [None]
